FAERS Safety Report 5043147-1 (Version None)
Quarter: 2006Q2

REPORT INFORMATION
  Report Type: 
  Country: None (occurrence: None)
  Receive Date: 20060628
  Receipt Date: 20060607
  Transmission Date: 20061013
  Serious: Yes (Other)
  Sender: FDA-Public Use
  Company Number: DE200606002774

PATIENT
  Age: 31 Year
  Sex: Female

DRUGS (5)
  1. FORTEO [Suspect]
     Indication: OSTEOPOROSIS
     Dosage: 20 UG DAILY (1/D) SUBCUTANEOUS
     Route: 058
     Dates: start: 20051001, end: 20060521
  2. FORTEO PEN (FORTEO PEN) [Concomitant]
  3. AZATHIOPRINE SODIUM [Concomitant]
  4. METHYLPREDNISOLONE [Concomitant]
  5. HERBAL PREPARATION [Concomitant]

REACTIONS (2)
  - BLOOD AMYLASE INCREASED [None]
  - LIPASE INCREASED [None]
